FAERS Safety Report 13581467 (Version 1)
Quarter: 2017Q2

REPORT INFORMATION
  Report Type: Spontaneous
  Country: LV (occurrence: LV)
  Receive Date: 20170525
  Receipt Date: 20170525
  Transmission Date: 20170830
  Serious: Yes (Hospitalization, Other)
  Sender: FDA-Public Use
  Company Number: LV-GLAXOSMITHKLINE-LV2017076124

PATIENT
  Age: 41 Year
  Sex: Male
  Weight: 85 kg

DRUGS (1)
  1. WELLBUTRIN SR [Suspect]
     Active Substance: BUPROPION HYDROCHLORIDE
     Indication: DEPRESSION
     Dosage: OVERDOSE 10 TABLETS TAKEN
     Route: 048
     Dates: start: 20170515, end: 20170515

REACTIONS (4)
  - Tongue oedema [Recovering/Resolving]
  - Angioedema [Recovering/Resolving]
  - Overdose [Recovering/Resolving]
  - Hypersensitivity [Recovering/Resolving]

NARRATIVE: CASE EVENT DATE: 20170515
